FAERS Safety Report 18679375 (Version 1)
Quarter: 2020Q4

REPORT INFORMATION
  Report Type: Report from Study
  Country: CA (occurrence: CA)
  Receive Date: 20201229
  Receipt Date: 20201229
  Transmission Date: 20210114
  Serious: Yes (Death, Hospitalization, Other)
  Sender: FDA-Public Use
  Company Number: CA-JNJFOC-20201230668

PATIENT
  Age: 63 Year
  Sex: Female

DRUGS (16)
  1. ELTROXIN [Concomitant]
     Active Substance: LEVOTHYROXINE
  2. LETROZOLE. [Concomitant]
     Active Substance: LETROZOLE
  3. CARIPUL [Suspect]
     Active Substance: EPOPROSTENOL
     Indication: PULMONARY HYPERTENSION
     Route: 065
     Dates: start: 20181025
  4. CARIPUL [Suspect]
     Active Substance: EPOPROSTENOL
     Route: 065
  5. ADEMPAS [Concomitant]
     Active Substance: RIOCIGUAT
  6. COTAZYM [PANCREATIN] [Concomitant]
  7. LANSOPRAZOLE. [Concomitant]
     Active Substance: LANSOPRAZOLE
  8. AMIODARONE [Concomitant]
     Active Substance: AMIODARONE
  9. BUMETANIDE. [Concomitant]
     Active Substance: BUMETANIDE
  10. TYLENOL [Concomitant]
     Active Substance: ACETAMINOPHEN
  11. APIXABAN [Concomitant]
     Active Substance: APIXABAN
  12. METOCLOPRAMIDE. [Concomitant]
     Active Substance: METOCLOPRAMIDE
  13. ZOPICLONE [Concomitant]
     Active Substance: ZOPICLONE
  14. TRACLEER [Suspect]
     Active Substance: BOSENTAN
     Indication: PULMONARY HYPERTENSION
     Route: 065
     Dates: start: 20190205
  15. SPIRONOLACTONE. [Concomitant]
     Active Substance: SPIRONOLACTONE
  16. LOPERAMIDE [Concomitant]
     Active Substance: LOPERAMIDE

REACTIONS (4)
  - Musculoskeletal discomfort [Not Recovered/Not Resolved]
  - Catheter site infection [Not Recovered/Not Resolved]
  - Death [Fatal]
  - Hepatic cancer [Not Recovered/Not Resolved]

NARRATIVE: CASE EVENT DATE: 20201211
